FAERS Safety Report 6002606-5 (Version None)
Quarter: 2008Q4

REPORT INFORMATION
  Report Type: 
  Country: None (occurrence: None)
  Receive Date: 20081215
  Receipt Date: 20071203
  Transmission Date: 20090506
  Serious: No
  Sender: FDA-Public Use
  Company Number: US-AMGEN-KDL252296

PATIENT
  Sex: Male

DRUGS (4)
  1. ENBREL [Suspect]
     Indication: PSORIASIS
     Route: 058
     Dates: start: 20070301
  2. ENBREL [Suspect]
     Indication: PSORIATIC ARTHROPATHY
  3. DEPAKOTE [Suspect]
     Dates: start: 20071012
  4. CLOBETASOL PROPIONATE [Concomitant]

REACTIONS (3)
  - ANGER [None]
  - MUSCULOSKELETAL PAIN [None]
  - PSORIASIS [None]
